FAERS Safety Report 8177771-4 (Version None)
Quarter: 2012Q1

REPORT INFORMATION
  Report Type: 
  Country: None (occurrence: None)
  Receive Date: 20120301
  Receipt Date: 20120223
  Transmission Date: 20120608
  Serious: Yes (Hospitalization)
  Sender: FDA-Public Use
  Company Number: US-JNJFOC-20120213047

PATIENT
  Sex: Female
  Weight: 49.8 kg

DRUGS (5)
  1. INFLIXIMAB, RECOMBINANT [Suspect]
     Indication: INFLAMMATORY BOWEL DISEASE
     Route: 042
     Dates: start: 20110720
  2. MULTI-VITAMINS [Concomitant]
  3. ALBUTEROL [Concomitant]
  4. MESALAMINE [Concomitant]
     Route: 048
  5. IRON [Concomitant]

REACTIONS (1)
  - HAEMORRHAGIC ANAEMIA [None]
